FAERS Safety Report 12612687 (Version 1)
Quarter: 2016Q3

REPORT INFORMATION
  Report Type: Spontaneous
  Country: CH (occurrence: CH)
  Receive Date: 20160801
  Receipt Date: 20160801
  Transmission Date: 20161109
  Serious: Yes (Other)
  Sender: FDA-Public Use
  Company Number: PHHY2016CH104731

PATIENT
  Sex: Female
  Weight: 52 kg

DRUGS (3)
  1. INDIVINA [Concomitant]
     Indication: POSTMENOPAUSE
     Dosage: 1 UNK, UNK
     Route: 048
     Dates: end: 201103
  2. GILENYA [Suspect]
     Active Substance: FINGOLIMOD HYDROCHLORIDE
     Indication: MULTIPLE SCLEROSIS
     Dosage: 0.5 MG, QD
     Route: 048
     Dates: start: 20150908, end: 201605
  3. ATORVASTATIN [Concomitant]
     Active Substance: ATORVASTATIN
     Indication: DYSLIPIDAEMIA
     Dosage: 1 UNK, UNK
     Route: 048

REACTIONS (2)
  - Bronchial carcinoma [Not Recovered/Not Resolved]
  - Breast cancer female [Not Recovered/Not Resolved]

NARRATIVE: CASE EVENT DATE: 20160317
